FAERS Safety Report 5896379-4 (Version None)
Quarter: 2008Q3

REPORT INFORMATION
  Report Type: 
  Country: None (occurrence: None)
  Receive Date: 20080924
  Receipt Date: 20070709
  Transmission Date: 20090109
  Serious: No
  Sender: FDA-Public Use
  Company Number: US-BAYER-200711309BWH

PATIENT
  Age: 63 Year
  Sex: Female

DRUGS (14)
  1. AVELOX [Suspect]
     Indication: TUBERCULOSIS
     Dosage: TOTAL DAILY DOSE: 400 MG  UNIT DOSE: 400 MG
     Route: 048
     Dates: start: 20050824, end: 20051215
  2. PREVACID [Concomitant]
     Route: 048
  3. REMERON [Concomitant]
     Route: 048
  4. ENOXAPARIN SODIUM [Concomitant]
     Route: 058
  5. EPOETIN [Concomitant]
  6. CARVEDILOL [Concomitant]
  7. AZMACORT [Concomitant]
     Route: 055
  8. AMIKACIN [Concomitant]
  9. CYCLOSERINE [Concomitant]
  10. CLOFAZIMINE [Concomitant]
  11. P.A.S. [Concomitant]
  12. OXANDRIN [Concomitant]
  13. GLYBURIDE [Concomitant]
  14. ASPIRIN [Concomitant]
     Route: 048

REACTIONS (1)
  - TUBERCULOSIS [None]
